FAERS Safety Report 6255439-9 (Version None)
Quarter: 2009Q3

REPORT INFORMATION
  Report Type: 
  Country: None (occurrence: None)
  Receive Date: 20090702
  Receipt Date: 20090625
  Transmission Date: 20100115
  Serious: Yes (Hospitalization)
  Sender: FDA-Public Use
  Company Number: JP-ABBOTT-09P-087-0568296-01

PATIENT
  Sex: Male

DRUGS (14)
  1. LEUPRORELIN DEPOT [Suspect]
     Indication: SPINAL MUSCULAR ATROPHY
     Route: 058
     Dates: start: 20071030
  2. TAKEPRON [Concomitant]
     Indication: GASTRIC ULCER
     Route: 048
     Dates: start: 20060119
  3. BLOPRESS [Concomitant]
     Indication: HYPERTENSION
     Route: 048
     Dates: start: 20060324
  4. ACTOS [Concomitant]
     Indication: DIABETES MELLITUS
     Route: 048
     Dates: start: 20080318
  5. ATARAX [Concomitant]
     Indication: PRURITUS
     Route: 048
     Dates: start: 20040916
  6. MAGNESIUM OXIDE HEAVY [Concomitant]
     Indication: CONSTIPATION
     Route: 048
     Dates: start: 20060313
  7. ASPIRIN [Concomitant]
     Indication: CEREBRAL INFARCTION
     Route: 048
     Dates: start: 20060314
  8. GASMOTIN [Concomitant]
     Indication: GASTRIC ULCER
     Route: 048
     Dates: start: 20060413
  9. CRESTOR [Concomitant]
     Indication: HYPERLIPIDAEMIA
     Route: 048
     Dates: start: 20071002
  10. AMARYL [Concomitant]
     Indication: DIABETES MELLITUS
     Dosage: MORNING 2MG, EVENING 1.5 MG
     Dates: start: 20071120
  11. URIEF (SILODOSIN) [Concomitant]
     Indication: POLLAKIURIA
     Route: 048
     Dates: start: 20080819
  12. UREPEARL [Concomitant]
     Indication: PRURITUS
     Dosage: OPTIMAL DOSE
     Route: 062
     Dates: start: 20081209
  13. RINDERON V [Concomitant]
     Indication: PRURITUS
     Dosage: OPTIMAL DOSE
     Route: 062
     Dates: start: 20081209
  14. EURAX H [Concomitant]
     Indication: PRURITUS
     Dosage: OPTIMAL DOSE
     Route: 062
     Dates: start: 20071030

REACTIONS (1)
  - TIBIA FRACTURE [None]
